FAERS Safety Report 4449894-4 (Version None)
Quarter: 2004Q3

REPORT INFORMATION
  Report Type: 
  Country: None (occurrence: None)
  Receive Date: 20040915
  Receipt Date: 20040909
  Transmission Date: 20050211
  Serious: Yes (Other)
  Sender: FDA-Public Use
  Company Number: 200412060DE

PATIENT
  Age: 41 Year
  Sex: Male

DRUGS (3)
  1. KETEK [Suspect]
     Indication: LUNG INFECTION
     Route: 048
     Dates: start: 20040713, end: 20040714
  2. ASPECTON [Concomitant]
     Route: 048
  3. AMBROXOL [Concomitant]

REACTIONS (6)
  - CHILLS [None]
  - MALAISE [None]
  - MENTAL IMPAIRMENT [None]
  - OEDEMA PERIPHERAL [None]
  - POLYARTHRITIS [None]
  - SHOCK [None]
